FAERS Safety Report 8059850-5 (Version None)
Quarter: 2012Q1

REPORT INFORMATION
  Report Type: 
  Country: None (occurrence: None)
  Receive Date: 20120120
  Receipt Date: 20120111
  Transmission Date: 20120608
  Serious: Yes (Hospitalization, Other)
  Sender: FDA-Public Use
  Company Number: FR-ELI_LILLY_AND_COMPANY-FR201201000675

PATIENT
  Age: 62 Year
  Sex: Male

DRUGS (4)
  1. VALSARTAN  AND HYDROCHLOROTHIAZIDE [Concomitant]
     Route: 048
  2. NSAID'S [Concomitant]
  3. TAXOTERE [Concomitant]
     Indication: LEIOMYOSARCOMA
     Route: 042
  4. GEMZAR [Suspect]
     Indication: LEIOMYOSARCOMA
     Dosage: UNK, UNKNOWN
     Route: 042

REACTIONS (11)
  - RENAL FAILURE ACUTE [None]
  - OFF LABEL USE [None]
  - HYPOALBUMINAEMIA [None]
  - GENERAL PHYSICAL HEALTH DETERIORATION [None]
  - DIARRHOEA [None]
  - GENERALISED OEDEMA [None]
  - CAPILLARY LEAK SYNDROME [None]
  - DECREASED APPETITE [None]
  - APLASTIC ANAEMIA [None]
  - ACUTE PULMONARY OEDEMA [None]
  - OEDEMA PERIPHERAL [None]
